FAERS Safety Report 4430290-0 (Version None)
Quarter: 2004Q3

REPORT INFORMATION
  Report Type: 
  Country: None (occurrence: None)
  Receive Date: 20040817
  Receipt Date: 20040803
  Transmission Date: 20050211
  Serious: Yes (Hospitalization)
  Sender: FDA-Public Use
  Company Number: 104602ISR

PATIENT
  Age: 16 Year
  Sex: Male

DRUGS (5)
  1. METHOTREXATE [Suspect]
     Indication: ACUTE LYMPHOCYTIC LEUKAEMIA
     Dosage: SEE IMAGE
     Route: 042
     Dates: start: 20040430, end: 20040501
  2. VINCRISTINE [Concomitant]
  3. MERCAPTOPURINE [Concomitant]
  4. CYTARABINE [Concomitant]
  5. STEROIDS [Concomitant]

REACTIONS (8)
  - DIARRHOEA [None]
  - DRUG CLEARANCE DECREASED [None]
  - HYPOXIA [None]
  - MUCOSAL INFLAMMATION [None]
  - PANCYTOPENIA [None]
  - PNEUMONITIS [None]
  - PYREXIA [None]
  - RENAL FAILURE ACUTE [None]
